FAERS Safety Report 5547067-5 (Version None)
Quarter: 2007Q4

REPORT INFORMATION
  Report Type: 
  Country: None (occurrence: None)
  Receive Date: 20071211
  Receipt Date: 20071129
  Transmission Date: 20080405
  Serious: Yes (Other)
  Sender: FDA-Public Use
  Company Number: DE-PFIZER INC-2007095882

PATIENT
  Age: 10 Year
  Sex: Male

DRUGS (2)
  1. UNACID INJECTION [Suspect]
     Indication: TONSILLITIS
     Route: 042
     Dates: start: 20071105, end: 20071110
  2. UNACID PD [Suspect]
     Indication: TONSILLITIS
     Route: 048
     Dates: start: 20071111, end: 20071112

REACTIONS (3)
  - DERMATITIS ALLERGIC [None]
  - PRURITUS [None]
  - PYREXIA [None]
